FAERS Safety Report 19081948 (Version 7)
Quarter: 2022Q4

REPORT INFORMATION
  Report Type: Report from Study
  Country: JP (occurrence: JP)
  Receive Date: 20210401
  Receipt Date: 20221205
  Transmission Date: 20230113
  Serious: Yes (Other)
  Sender: FDA-Public Use
  Company Number: NVSJ2021JP003210

PATIENT
  Age: 46 Year
  Sex: Female
  Weight: 91 kg

DRUGS (18)
  1. MAYZENT [Suspect]
     Active Substance: SIPONIMOD
     Indication: Secondary progressive multiple sclerosis
     Dosage: 0.25 MG
     Route: 048
     Dates: start: 20201119, end: 20201120
  2. MAYZENT [Suspect]
     Active Substance: SIPONIMOD
     Dosage: 0.5 MG
     Route: 048
     Dates: start: 20201121, end: 20201121
  3. MAYZENT [Suspect]
     Active Substance: SIPONIMOD
     Dosage: 0.75 MG
     Route: 048
     Dates: start: 20201122, end: 20201122
  4. MAYZENT [Suspect]
     Active Substance: SIPONIMOD
     Dosage: 1.25 MG
     Route: 048
     Dates: start: 20201123, end: 20201123
  5. MAYZENT [Suspect]
     Active Substance: SIPONIMOD
     Dosage: 2 MG
     Route: 048
     Dates: start: 20201124, end: 20210224
  6. PRAVASTATIN SODIUM [Concomitant]
     Active Substance: PRAVASTATIN SODIUM
     Indication: Product used for unknown indication
     Dosage: 10 MG
     Route: 048
  7. PREDONINE [Concomitant]
     Active Substance: PREDNISOLONE
     Indication: Secondary progressive multiple sclerosis
     Dosage: UNK MG
     Route: 048
     Dates: start: 2011
  8. PREDONINE [Concomitant]
     Active Substance: PREDNISOLONE
     Dosage: 10 MG
     Route: 048
     Dates: end: 202101
  9. PREDONINE [Concomitant]
     Active Substance: PREDNISOLONE
     Dosage: 8 MG
     Route: 048
     Dates: start: 202101, end: 202102
  10. PREDONINE [Concomitant]
     Active Substance: PREDNISOLONE
     Dosage: 12.5 MG
     Route: 048
     Dates: start: 202102
  11. MIYA-BM [Concomitant]
     Active Substance: CLOSTRIDIUM BUTYRICUM SPORES STRAIN M-55
     Indication: Product used for unknown indication
     Dosage: 6 MG
     Route: 048
  12. LOXOPROFEN SODIUM [Concomitant]
     Active Substance: LOXOPROFEN SODIUM
     Indication: Product used for unknown indication
     Dosage: 60 MG
     Route: 048
  13. AZATHIOPRINE [Concomitant]
     Active Substance: AZATHIOPRINE
     Indication: Secondary progressive multiple sclerosis
     Dosage: UNK
     Route: 065
     Dates: start: 201405
  14. AZATHIOPRINE [Concomitant]
     Active Substance: AZATHIOPRINE
     Dosage: 25 MG, EVERY OTHER DAY
     Route: 065
     Dates: end: 202012
  15. BETAMETHASONE [Concomitant]
     Active Substance: BETAMETHASONE
     Indication: Secondary progressive multiple sclerosis
     Dosage: UNK
     Route: 048
     Dates: start: 2016
  16. BETAMETHASONE [Concomitant]
     Active Substance: BETAMETHASONE
     Dosage: UNK, PRN
     Route: 048
     Dates: start: 2018
  17. BETAMETHASONE [Concomitant]
     Active Substance: BETAMETHASONE
     Dosage: UNK
     Route: 048
     Dates: start: 202104
  18. BETAMETHASONE [Concomitant]
     Active Substance: BETAMETHASONE
     Dosage: UNK
     Route: 048
     Dates: start: 202105

REACTIONS (11)
  - Multiple sclerosis [Unknown]
  - Dementia [Unknown]
  - Hemiparesis [Recovering/Resolving]
  - Behaviour disorder [Unknown]
  - Language disorder [Unknown]
  - Paralysis [Unknown]
  - Physical deconditioning [Unknown]
  - Gait disturbance [Unknown]
  - Fatigue [Recovering/Resolving]
  - Lymphocyte count decreased [Unknown]
  - Drug ineffective [Unknown]

NARRATIVE: CASE EVENT DATE: 20201201
